FAERS Safety Report 5875745-7 (Version None)
Quarter: 2008Q3

REPORT INFORMATION
  Report Type: 
  Country: None (occurrence: None)
  Receive Date: 20080905
  Receipt Date: 20080822
  Transmission Date: 20090109
  Serious: Yes (Other)
  Sender: FDA-Public Use
  Company Number: 20097

PATIENT
  Sex: Female

DRUGS (2)
  1. PAMIDRONATE DISODIUM [Suspect]
     Dates: start: 20040101
  2. ACLASTA [Suspect]
     Indication: OSTEOPOROSIS
     Dates: start: 20080218, end: 20080218

REACTIONS (2)
  - OSTEONECROSIS [None]
  - OSTEOPOROSIS [None]
